FAERS Safety Report 8671932 (Version 2)
Quarter: 2013Q4

REPORT INFORMATION
  Report Type: Spontaneous
  Country: US (occurrence: US)
  Receive Date: 20120718
  Receipt Date: 20131101
  Transmission Date: 20140711
  Serious: No
  Sender: FDA-Public Use
  Company Number: US-009507513-1207USA000266

PATIENT
  Age: 57 Year
  Sex: Female

DRUGS (1)
  1. COSOPT [Suspect]
     Dosage: 2 DROPS, BID
     Route: 047
     Dates: start: 201201

REACTIONS (1)
  - Drug ineffective [Unknown]
